FAERS Safety Report 12576329 (Version 1)
Quarter: 2016Q3

REPORT INFORMATION
  Report Type: Spontaneous
  Country: BR (occurrence: BR)
  Receive Date: 20160720
  Receipt Date: 20160720
  Transmission Date: 20161109
  Serious: Yes (Hospitalization, Other)
  Sender: FDA-Public Use
  Company Number: BR-GLAXOSMITHKLINE-BR2016GSK103060

PATIENT
  Age: 63 Year
  Sex: Male
  Weight: 81 kg

DRUGS (1)
  1. CATAFLAMPRO [Suspect]
     Active Substance: DICLOFENAC DIETHYLAMINE
     Indication: MYALGIA
     Dosage: UNK
     Route: 061
     Dates: end: 20160609

REACTIONS (10)
  - Ischaemic stroke [Recovering/Resolving]
  - Distractibility [Unknown]
  - Syncope [Unknown]
  - Back injury [Recovered/Resolved]
  - Dizziness [Recovered/Resolved]
  - Blood pressure fluctuation [Recovered/Resolved]
  - Epilepsy [Recovering/Resolving]
  - Road traffic accident [Unknown]
  - Seizure [Recovering/Resolving]
  - Loss of consciousness [Recovering/Resolving]

NARRATIVE: CASE EVENT DATE: 20160606
